FAERS Safety Report 8020156-1 (Version None)
Quarter: 2012Q1

REPORT INFORMATION
  Report Type: 
  Country: None (occurrence: None)
  Receive Date: 20120103
  Receipt Date: 20111227
  Transmission Date: 20120608
  Serious: Yes (Other)
  Sender: FDA-Public Use
  Company Number: US-BAYER-2011-097738

PATIENT
  Age: 37 Year
  Weight: 114.74 kg

DRUGS (2)
  1. MIRENA [Suspect]
     Indication: CONTRACEPTION
  2. MIRENA [Suspect]
     Indication: MENORRHAGIA
     Dosage: 20 MCG/24HR, CONT
     Route: 015
     Dates: start: 20110830, end: 20111011

REACTIONS (4)
  - VAGINAL HAEMORRHAGE [None]
  - DEVICE EXPULSION [None]
  - GENITAL HAEMORRHAGE [None]
  - UTERINE HAEMORRHAGE [None]
